FAERS Safety Report 9276967 (Version 1)
Quarter: 2013Q2

REPORT INFORMATION
  Report Type: Spontaneous
  Country: FR (occurrence: FR)
  Receive Date: 20130507
  Receipt Date: 20130507
  Transmission Date: 20140414
  Serious: Yes (Hospitalization)
  Sender: FDA-Public Use
  Company Number: FR-PFIZER INC-2013137870

PATIENT
  Age: 94 Year
  Sex: Female

DRUGS (13)
  1. LYRICA [Suspect]
     Indication: RADICULAR PAIN
     Dosage: 2 DF, 1X/DAY
     Route: 048
     Dates: start: 201301, end: 20130316
  2. OXYCONTIN [Suspect]
     Dosage: 20 MG, DAILY
     Route: 048
     Dates: start: 201302
  3. IMOVANE [Suspect]
     Dosage: UNK
  4. INEXIUM [Concomitant]
  5. LAROXYL [Concomitant]
  6. CORTANCYL [Concomitant]
  7. FOSAMAX [Concomitant]
  8. PRETERAX [Concomitant]
  9. CALCIUM WITH VITAMIN D [Concomitant]
  10. IMODIUM [Concomitant]
  11. FORLAX [Concomitant]
  12. OPHTIM [Concomitant]
  13. PARACETAMOL [Concomitant]

REACTIONS (5)
  - Depressed level of consciousness [Recovered/Resolved]
  - Balance disorder [Recovered/Resolved]
  - Somnolence [Recovered/Resolved]
  - Feeling abnormal [Recovered/Resolved]
  - General physical health deterioration [Recovered/Resolved]
